FAERS Safety Report 4881318-5 (Version None)
Quarter: 2005Q4

REPORT INFORMATION
  Report Type: 
  Country: None (occurrence: None)
  Receive Date: 20051212
  Receipt Date: 20050912
  Transmission Date: 20060501
  Serious: Yes (Hospitalization, Other)
  Sender: FDA-Public Use
  Company Number: 2005-01934

PATIENT
  Age: 70 Year
  Sex: Male

DRUGS (6)
  1. VELCADE [Suspect]
     Indication: MULTIPLE MYELOMA
     Dosage: 1.60 MG, INTRAVENOUS
     Route: 042
     Dates: start: 20050101
  2. THALOMID [Suspect]
     Indication: MULTIPLE MYELOMA
     Dosage: 50.00 MG, QD
     Dates: start: 20050101
  3. DECADRON [Concomitant]
  4. COUMADIN [Concomitant]
  5. PAXIL [Concomitant]
  6. ZOMETA [Concomitant]

REACTIONS (7)
  - DIARRHOEA [None]
  - DISEASE PROGRESSION [None]
  - HAEMOGLOBIN DECREASED [None]
  - NEUROPATHY PERIPHERAL [None]
  - PLATELET COUNT DECREASED [None]
  - PNEUMONIA [None]
  - RESPIRATORY DISTRESS [None]
